FAERS Safety Report 11717833 (Version 1)
Quarter: 2015Q4

REPORT INFORMATION
  Report Type: Spontaneous
  Country: US (occurrence: US)
  Receive Date: 20151110
  Receipt Date: 20151110
  Transmission Date: 20160304
  Serious: Yes (Death, Hospitalization)
  Sender: FDA-Public Use
  Company Number: US-UNITED THERAPEUTICS-UNT-2015-013493

PATIENT
  Age: 7 Year
  Sex: Male
  Weight: 19.5 kg

DRUGS (2)
  1. REMODULIN [Suspect]
     Active Substance: TREPROSTINIL
     Indication: PULMONARY ARTERIAL HYPERTENSION
     Dosage: 0.11637 ?G/KG, CONTINUING
     Route: 041
     Dates: start: 20140623
  2. LETAIRIS [Suspect]
     Active Substance: AMBRISENTAN
     Indication: PRODUCT USED FOR UNKNOWN INDICATION
     Dosage: 5 MG, QD
     Dates: start: 20150702

REACTIONS (4)
  - Cardio-respiratory arrest [Fatal]
  - Device related infection [Unknown]
  - Drug administered to patient of inappropriate age [Unknown]
  - Off label use [Unknown]

NARRATIVE: CASE EVENT DATE: 20150702
